FAERS Safety Report 13843349 (Version 1)
Quarter: 2017Q3

REPORT INFORMATION
  Report Type: Spontaneous
  Country: US (occurrence: US)
  Receive Date: 20170808
  Receipt Date: 20170808
  Transmission Date: 20171127
  Serious: No
  Sender: FDA-Public Use
  Company Number: US-BAYER-2017-151173

PATIENT
  Sex: Female

DRUGS (3)
  1. BUTAZONE [Concomitant]
  2. MIRALAX [Suspect]
     Active Substance: POLYETHYLENE GLYCOL 3350
     Route: 065
  3. CALDINE [Concomitant]
     Active Substance: LACIDIPINE

REACTIONS (1)
  - Incorrect drug administration duration [Unknown]
